FAERS Safety Report 8127565-0 (Version None)
Quarter: 2012Q1

REPORT INFORMATION
  Report Type: 
  Country: None (occurrence: None)
  Receive Date: 20120210
  Receipt Date: 20120201
  Transmission Date: 20120608
  Serious: Yes (Hospitalization)
  Sender: FDA-Public Use
  Company Number: DE-ABBOTT-12P-062-0900530-02

PATIENT
  Sex: Male

DRUGS (2)
  1. HUMIRA [Suspect]
     Dosage: WEEK 2
     Route: 058
     Dates: end: 20080513
  2. HUMIRA [Suspect]
     Indication: CROHN'S DISEASE
     Dosage: (BASELINE)
     Route: 058
     Dates: start: 20080415, end: 20080415

REACTIONS (1)
  - CROHN'S DISEASE [None]
